FAERS Safety Report 4488658-2 (Version None)
Quarter: 2004Q4

REPORT INFORMATION
  Report Type: 
  Country: None (occurrence: None)
  Receive Date: 20041026
  Receipt Date: 20041013
  Transmission Date: 20050328
  Serious: Yes (Other)
  Sender: FDA-Public Use
  Company Number: USA041081001

PATIENT
  Age: 67 Year
  Sex: Male
  Weight: 86 kg

DRUGS (1)
  1. HUMALOG MIX 75/25 [Suspect]
     Dosage: 80 U DAY
     Dates: start: 20030101

REACTIONS (2)
  - HYPOAESTHESIA [None]
  - LYMPHOMA [None]
